FAERS Safety Report 8272038-8 (Version None)
Quarter: 2012Q1

REPORT INFORMATION
  Report Type: 
  Country: None (occurrence: None)
  Receive Date: 20120308
  Receipt Date: 20120116
  Transmission Date: 20120608
  Serious: No
  Sender: FDA-Public Use
  Company Number: PHEH2012US001379

PATIENT
  Sex: Female

DRUGS (1)
  1. FANAPT [Suspect]

REACTIONS (4)
  - OBSESSIVE-COMPULSIVE DISORDER [None]
  - HEART RATE INCREASED [None]
  - EMOTIONAL DISORDER [None]
  - DEPRESSION [None]
